FAERS Safety Report 6256662-X (Version None)
Quarter: 2009Q3

REPORT INFORMATION
  Report Type: 
  Country: None (occurrence: None)
  Receive Date: 20090706
  Receipt Date: 20090603
  Transmission Date: 20100115
  Serious: No
  Sender: FDA-Public Use
  Company Number: US-BAYER-200911738BCC

PATIENT
  Age: 50 Year
  Sex: Female

DRUGS (1)
  1. ALEVE [Suspect]
     Indication: CYST
     Dosage: UNIT DOSE: 220 MG
     Route: 048

REACTIONS (1)
  - BLOOD PRESSURE INCREASED [None]
